FAERS Safety Report 13274858 (Version 9)
Quarter: 2019Q2

REPORT INFORMATION
  Report Type: Report from Study
  Country: US (occurrence: US)
  Receive Date: 20170227
  Receipt Date: 20190507
  Transmission Date: 20190711
  Serious: Yes (Hospitalization, Other)
  Sender: FDA-Public Use
  Company Number: US-ACTELION-A-NJ2013-85628

PATIENT
  Sex: Female
  Weight: 63.49 kg

DRUGS (3)
  1. VELETRI [Suspect]
     Active Substance: EPOPROSTENOL
     Dosage: 40 NG/KG, PER MIN
     Route: 042
     Dates: start: 20110512
  2. VELETRI [Suspect]
     Active Substance: EPOPROSTENOL
     Dosage: 44.5 NG/KG, PER MIN
     Route: 042
  3. VELETRI [Suspect]
     Active Substance: EPOPROSTENOL
     Indication: PULMONARY ARTERIAL HYPERTENSION
     Dosage: 43.5 NG/KG, PER MIN
     Route: 042

REACTIONS (23)
  - Dyspnoea exertional [Unknown]
  - Urinary incontinence [Unknown]
  - Pneumonia [Unknown]
  - Complication associated with device [Recovered/Resolved]
  - Gait disturbance [Unknown]
  - Oral pain [Unknown]
  - Headache [Unknown]
  - Abdominal hernia [Unknown]
  - Peripheral swelling [Unknown]
  - Dyspnoea [Unknown]
  - Cardiac failure [Unknown]
  - Aspiration pleural cavity [Unknown]
  - Muscle spasms [Unknown]
  - Arthralgia [Unknown]
  - Burning sensation [Unknown]
  - Catheter site erythema [Unknown]
  - Catheter site pruritus [Unknown]
  - Abdominal pain upper [Unknown]
  - Dysstasia [Unknown]
  - Pain [Unknown]
  - Malaise [Unknown]
  - Nausea [Unknown]
  - Pain in extremity [Unknown]
